FAERS Safety Report 18316489 (Version 2)
Quarter: 2020Q4

REPORT INFORMATION
  Report Type: Spontaneous
  Country: SG (occurrence: SG)
  Receive Date: 20200927
  Receipt Date: 20201027
  Transmission Date: 20210113
  Serious: Yes (Other)
  Sender: FDA-Public Use
  Company Number: SG-ROCHE-2680414

PATIENT
  Sex: Female

DRUGS (2)
  1. AFLIBERCEPT [Suspect]
     Active Substance: AFLIBERCEPT
     Indication: POLYPOIDAL CHOROIDAL VASCULOPATHY
     Route: 065
  2. RANIBIZUMAB. [Suspect]
     Active Substance: RANIBIZUMAB
     Indication: POLYPOIDAL CHOROIDAL VASCULOPATHY
     Route: 065

REACTIONS (6)
  - Product use in unapproved indication [Unknown]
  - Detachment of retinal pigment epithelium [Unknown]
  - Eye haemorrhage [Unknown]
  - Blindness [Unknown]
  - Polyp [Not Recovered/Not Resolved]
  - Off label use [Unknown]
